FAERS Safety Report 8840418 (Version 1)
Quarter: 2012Q4

REPORT INFORMATION
  Report Type: 
  Country: US (occurrence: US)
  Receive Date: 20121015
  Receipt Date: 20121015
  Transmission Date: 20130627
  Serious: No
  Sender: FDA-Public Use
  Company Number: US-009507513-1210USA004435

PATIENT
  Age: 65 Year
  Sex: Male

DRUGS (2)
  1. JANUMET [Suspect]
     Dosage: UNK
     Route: 048
  2. JANUVIA [Suspect]
     Dosage: UNK
     Route: 048

REACTIONS (1)
  - Blood glucose decreased [Unknown]
